FAERS Safety Report 18679794 (Version 1)
Quarter: 2020Q4

REPORT INFORMATION
  Report Type: Spontaneous
  Country: US (occurrence: US)
  Receive Date: 20201230
  Receipt Date: 20201230
  Transmission Date: 20210114
  Serious: Yes (Hospitalization)
  Sender: FDA-Public Use
  Company Number: US-JNJFOC-20201240330

PATIENT
  Sex: Female

DRUGS (3)
  1. INVEGA SUSTENNA [Suspect]
     Active Substance: PALIPERIDONE PALMITATE
     Indication: PRODUCT USED FOR UNKNOWN INDICATION
     Route: 030
  2. INVEGA SUSTENNA [Suspect]
     Active Substance: PALIPERIDONE PALMITATE
  3. INVEGA SUSTENNA [Suspect]
     Active Substance: PALIPERIDONE PALMITATE

REACTIONS (10)
  - Dyspnoea [Unknown]
  - Swollen tongue [Unknown]
  - Emotional distress [Unknown]
  - Carbon monoxide poisoning [Unknown]
  - Nystagmus [Unknown]
  - Homicidal ideation [Unknown]
  - Amnesia [Unknown]
  - Abnormal behaviour [Unknown]
  - Tooth extraction [Unknown]
  - Anxiety [Unknown]
